FAERS Safety Report 24293727 (Version 1)
Quarter: 2024Q3

REPORT INFORMATION
  Report Type: Spontaneous
  Country: US (occurrence: None)
  Receive Date: 20240905
  Receipt Date: 20240905
  Transmission Date: 20241017
  Serious: No
  Sender: Public
  Company Number: None

PATIENT
  Age: 60 Year
  Sex: Male
  Weight: 103.5 kg

DRUGS (4)
  1. TRINTELLIX [Suspect]
     Active Substance: VORTIOXETINE HYDROBROMIDE
     Indication: Depression
     Dosage: OTHER FREQUENCY : TWO DAILY;?
     Route: 048
     Dates: start: 20240610
  2. aripprazole [Concomitant]
     Dates: start: 20150527
  3. MIRTAZAPINE [Concomitant]
     Active Substance: MIRTAZAPINE
     Dates: start: 20190724
  4. WELLBUTRIN XL [Concomitant]
     Active Substance: BUPROPION HYDROCHLORIDE
     Dates: start: 20000615

REACTIONS (2)
  - Akathisia [None]
  - Tremor [None]

NARRATIVE: CASE EVENT DATE: 20240806
